FAERS Safety Report 7913590-9 (Version None)
Quarter: 2011Q4

REPORT INFORMATION
  Report Type: 
  Country: None (occurrence: None)
  Receive Date: 20111115
  Receipt Date: 20111111
  Transmission Date: 20120403
  Serious: No
  Sender: FDA-Public Use
  Company Number: US-PFIZER INC-2011276404

PATIENT
  Sex: Female

DRUGS (1)
  1. LYRICA [Suspect]
     Indication: NEURALGIA
     Dosage: TWO 75MG ORAL CAPSULES IN THE MORNING AND THREE 75MG ORAL CAPSULES IN THE EVENING
     Route: 048
     Dates: start: 20070101

REACTIONS (1)
  - PAIN IN EXTREMITY [None]
